FAERS Safety Report 4490460-2 (Version None)
Quarter: 2004Q4

REPORT INFORMATION
  Report Type: 
  Country: None (occurrence: None)
  Receive Date: 20041028
  Receipt Date: 20041013
  Transmission Date: 20050328
  Serious: Yes (Death, Life-Threatening)
  Sender: FDA-Public Use
  Company Number: 2004IM000867

PATIENT
  Age: 54 Year
  Sex: Female

DRUGS (16)
  1. ADVAFERON (A643_INTERFERON ALFACON_1) [Suspect]
     Indication: HEPATITIS C
     Dosage: 18 MU; QD; SUBCUTANEOUS
     Route: 058
     Dates: start: 20031223, end: 20031231
  2. ADVAFERON (A643_INTERFERON ALFACON_1) [Suspect]
     Indication: HEPATITIS FULMINANT
     Dosage: 18 MU; QD; SUBCUTANEOUS
     Route: 058
     Dates: start: 20031223, end: 20031231
  3. FLUDARABINE [Concomitant]
  4. MELPHALAN [Concomitant]
  5. CYCLOSPORINE [Concomitant]
  6. METHOTREXATE [Concomitant]
  7. LENOGRASTIM [Concomitant]
  8. CEFEPIME HYDROCHLORIDE [Concomitant]
  9. STRONG NEO-MINOPHAGEN C [Concomitant]
  10. PREDNISOLONE [Concomitant]
  11. METHYLPREDNISOLONE SODIUM SUCCINATE [Concomitant]
  12. GANCICLOVIR [Concomitant]
  13. URSODEOXYCHOLIC ACID [Concomitant]
  14. AMPHOTERICIN B [Concomitant]
  15. FAMOTIDINE [Concomitant]
  16. MARZULENE S [Concomitant]

REACTIONS (3)
  - METABOLIC ACIDOSIS [None]
  - PANCYTOPENIA [None]
  - SEPSIS [None]
